FAERS Safety Report 4913006-0 (Version None)
Quarter: 2006Q1

REPORT INFORMATION
  Report Type: 
  Country: None (occurrence: None)
  Receive Date: 20060215
  Receipt Date: 20051126
  Transmission Date: 20060701
  Serious: Yes (Hospitalization)
  Sender: FDA-Public Use
  Company Number: HQWYE733629NOV05

PATIENT
  Sex: Female

DRUGS (12)
  1. ENBREL [Suspect]
     Indication: RHEUMATOID ARTHRITIS
     Route: 058
     Dates: start: 20050613, end: 20051125
  2. PREDNISOLONE [Suspect]
     Indication: RHEUMATOID ARTHRITIS
     Dosage: DOSE AND FREQUENCY NOT SPECIFIED
     Route: 048
  3. PREDNISOLONE [Suspect]
     Dosage: FARNESYLATE: DOSE AND FREQUENCY NOT SPECIFIED
     Route: 061
  4. PULMICORT [Suspect]
     Indication: OBSTRUCTIVE AIRWAYS DISORDER
     Route: 055
  5. BUCILLAMINE [Concomitant]
     Indication: RHEUMATOID ARTHRITIS
  6. SODIUM AUROTHIOMALATE [Concomitant]
     Indication: RHEUMATOID ARTHRITIS
     Dates: end: 20050603
  7. SODIUM AUROTHIOMALATE [Concomitant]
     Route: 030
     Dates: start: 20051014
  8. ETODOLAC [Concomitant]
     Indication: RHEUMATOID ARTHRITIS
     Route: 048
  9. THEO-DUR [Concomitant]
     Indication: OBSTRUCTIVE AIRWAYS DISORDER
  10. SINGULAIR [Concomitant]
  11. NATEGLINIDE [Concomitant]
     Indication: DIABETES MELLITUS
  12. VOLTAREN [Concomitant]
     Indication: RHEUMATOID ARTHRITIS
     Dosage: DOSE AND FREQUENCY NOT SPECIFIED

REACTIONS (1)
  - PNEUMONIA PNEUMOCOCCAL [None]
